FAERS Safety Report 4904853-X (Version None)
Quarter: 2006Q1

REPORT INFORMATION
  Report Type: 
  Country: None (occurrence: None)
  Receive Date: 20060208
  Receipt Date: 20051012
  Transmission Date: 20060701
  Serious: No
  Sender: FDA-Public Use
  Company Number: US-GLAXOSMITHKLINE-A0578025A

PATIENT
  Age: 49 Year
  Sex: Female

DRUGS (4)
  1. PAROXETINE HCL [Suspect]
     Indication: DEPRESSION
     Route: 048
     Dates: start: 20050301, end: 20050701
  2. TRAZODONE [Concomitant]
  3. ATIVAN [Concomitant]
  4. AMBIEN [Concomitant]
     Route: 048

REACTIONS (2)
  - DEPRESSION [None]
  - DRUG INEFFECTIVE [None]
